FAERS Safety Report 11139781 (Version 3)
Quarter: 2020Q4

REPORT INFORMATION
  Report Type: Report from Study
  Country: US (occurrence: US)
  Receive Date: 20150527
  Receipt Date: 20201105
  Transmission Date: 20210113
  Serious: Yes (Other)
  Sender: FDA-Public Use
  Company Number: US-SA-2014SA093898

PATIENT
  Age: 50 Year
  Sex: Female

DRUGS (3)
  1. CYMBALTA [Concomitant]
     Active Substance: DULOXETINE HYDROCHLORIDE
     Dosage: UNK
     Route: 065
  2. LYRICA [Concomitant]
     Active Substance: PREGABALIN
     Dosage: UNK
     Route: 065
  3. TERIFLUNOMIDE. [Suspect]
     Active Substance: TERIFLUNOMIDE
     Indication: MULTIPLE SCLEROSIS
     Dosage: 14 MG,QD
     Route: 048
     Dates: start: 20140710

REACTIONS (23)
  - Cough [Unknown]
  - Amnesia [Not Recovered/Not Resolved]
  - Influenza like illness [Unknown]
  - Fibromyalgia [Unknown]
  - Magnetic resonance imaging abnormal [Unknown]
  - Alopecia [Unknown]
  - Insomnia [Unknown]
  - Ear pain [Unknown]
  - Product dose omission issue [Unknown]
  - Visual impairment [Unknown]
  - Back disorder [Not Recovered/Not Resolved]
  - Pain in extremity [Unknown]
  - Diarrhoea [Unknown]
  - Diplopia [Unknown]
  - Hypoaesthesia [Unknown]
  - Hypertension [Unknown]
  - Muscle spasms [Unknown]
  - Pain [Unknown]
  - Balance disorder [Unknown]
  - Depressed mood [Unknown]
  - Malaise [Unknown]
  - Pyrexia [Unknown]
  - Dizziness [Unknown]

NARRATIVE: CASE EVENT DATE: 201507
